FAERS Safety Report 12672206 (Version 1)
Quarter: 2016Q3

REPORT INFORMATION
  Report Type: Report from Study
  Country: CA (occurrence: CA)
  Receive Date: 20160822
  Receipt Date: 20160822
  Transmission Date: 20161109
  Serious: Yes (Hospitalization, Other)
  Sender: FDA-Public Use
  Company Number: CA-AMGEN-CANSL2015017076

PATIENT
  Age: 86 Year
  Sex: Female

DRUGS (14)
  1. VITAMIN B12 [Concomitant]
     Active Substance: CYANOCOBALAMIN
     Dosage: UNK UNK, QMO
  2. TYLENOL [Concomitant]
     Active Substance: ACETAMINOPHEN
     Indication: ARTHRITIS
  3. GLUCOSAMINE CHONDROITIN            /03040701/ [Concomitant]
     Dosage: 900 MG, UNK
  4. VITAMIN D                          /00107901/ [Concomitant]
     Active Substance: ERGOCALCIFEROL
     Dosage: 2000 MG, UNK
  5. SOFLAX                             /00061602/ [Concomitant]
  6. FENTANYL. [Concomitant]
     Active Substance: FENTANYL
     Indication: PAIN
     Dosage: 12.5 MG, UNK, Q72H
  7. PROLIA [Suspect]
     Active Substance: DENOSUMAB
     Indication: OSTEOPOROSIS POSTMENOPAUSAL
     Dosage: 60 MG, Q6MO
     Route: 058
     Dates: start: 20150120
  8. PANTOLOC                           /01263204/ [Concomitant]
     Active Substance: PANTOPRAZOLE SODIUM
     Indication: GASTRIC DISORDER
     Dosage: 40 MG, BID
  9. CALCIUM [Concomitant]
     Active Substance: CALCIUM
     Dosage: 650 MG, BID
  10. ASA [Concomitant]
     Active Substance: ASPIRIN
     Dosage: 81 MG, UNK
  11. SENOKOT [Concomitant]
     Active Substance: SENNOSIDES
  12. CELEXA [Concomitant]
     Active Substance: CITALOPRAM HYDROBROMIDE
  13. CLONAZEPAM CEVALLOS [Concomitant]
     Dosage: 2 MG, QHS
  14. NITROSTAT [Concomitant]
     Active Substance: NITROGLYCERIN
     Dosage: UNK UNK, AS NECESSARY

REACTIONS (8)
  - Nerve injury [Unknown]
  - Spinal fracture [Unknown]
  - Drug hypersensitivity [Unknown]
  - Internal haemorrhage [Unknown]
  - Dizziness [Unknown]
  - Anaphylactic shock [Unknown]
  - Pelvic fracture [Unknown]
  - Rib fracture [Unknown]

NARRATIVE: CASE EVENT DATE: 2015
